FAERS Safety Report 9732487 (Version 1)
Quarter: 2013Q4

REPORT INFORMATION
  Report Type: Spontaneous
  Country: GB (occurrence: GB)
  Receive Date: 20131205
  Receipt Date: 20131205
  Transmission Date: 20140711
  Serious: Yes (Hospitalization)
  Sender: FDA-Public Use
  Company Number: GB-TEVA-446436ISR

PATIENT
  Age: 81 Year
  Sex: Female
  Weight: 95.6 kg

DRUGS (8)
  1. ATORVASTATIN [Suspect]
     Indication: MYOCARDIAL INFARCTION
     Route: 048
     Dates: end: 20131103
  2. LEVOTHYROXINE [Concomitant]
  3. TICAGRELOR [Concomitant]
  4. ASPIRIN [Concomitant]
  5. RAMIPRIL [Concomitant]
  6. BISOPROLOL [Concomitant]
  7. HYDROCORTISONE [Concomitant]
  8. GTN [Concomitant]

REACTIONS (2)
  - Myositis [Recovering/Resolving]
  - Asthenia [Unknown]
